FAERS Safety Report 5085902-8 (Version None)
Quarter: 2006Q3

REPORT INFORMATION
  Report Type: 
  Country: None (occurrence: None)
  Receive Date: 20060815
  Receipt Date: 20060807
  Transmission Date: 20061208
  Serious: Yes (Other)
  Sender: FDA-Public Use
  Company Number: GAM-102-06-S

PATIENT
  Age: 59 Year
  Sex: Male

DRUGS (4)
  1. OCTAGAM [Suspect]
     Indication: DEMYELINATING POLYNEUROPATHY
     Dosage: 40 G I.V.
     Route: 042
     Dates: start: 20060506, end: 20060607
  2. OMEPRAZOL (OMEPRAZOL) [Concomitant]
  3. ATACAND [Concomitant]
  4. SELOKEN ZOC (METOPROLOL) [Concomitant]

REACTIONS (2)
  - GRAND MAL CONVULSION [None]
  - INJURY [None]
